FAERS Safety Report 4754805-8 (Version None)
Quarter: 2005Q3

REPORT INFORMATION
  Report Type: 
  Country: None (occurrence: None)
  Receive Date: 20050829
  Receipt Date: 20050823
  Transmission Date: 20060218
  Serious: Yes (Death)
  Sender: FDA-Public Use
  Company Number: PHRM2005FR02322

PATIENT
  Age: 55 Year
  Sex: Male

DRUGS (1)
  1. VOLTAREN [Suspect]
     Route: 048
     Dates: start: 20030901, end: 20031016

REACTIONS (8)
  - BLOOD PRESSURE SYSTOLIC DECREASED [None]
  - GASTRODUODENAL ULCER [None]
  - HAEMATEMESIS [None]
  - HAEMOGLOBIN DECREASED [None]
  - HEART RATE INCREASED [None]
  - MELAENA [None]
  - PLATELET COUNT DECREASED [None]
  - RESPIRATORY DISTRESS [None]
